FAERS Safety Report 6509227-6 (Version None)
Quarter: 2009Q4

REPORT INFORMATION
  Report Type: 
  Country: None (occurrence: None)
  Receive Date: 20091221
  Receipt Date: 20091207
  Transmission Date: 20100525
  Serious: Yes (Hospitalization)
  Sender: FDA-Public Use
  Company Number: NL-MEDIMMUNE-MEDI-0009880

PATIENT
  Sex: Male
  Weight: 4.63 kg

DRUGS (2)
  1. SYNAGIS [Suspect]
     Route: 030
     Dates: start: 20091012, end: 20091109
  2. SYNAGIS [Suspect]
     Route: 030
     Dates: start: 20091207, end: 20091207

REACTIONS (4)
  - ASTHENIA [None]
  - COUGH [None]
  - PYREXIA [None]
  - RESPIRATORY SYNCYTIAL VIRUS INFECTION [None]
